FAERS Safety Report 4848763-5 (Version None)
Quarter: 2005Q4

REPORT INFORMATION
  Report Type: 
  Country: None (occurrence: None)
  Receive Date: 20051206
  Receipt Date: 20051116
  Transmission Date: 20060501
  Serious: Yes (Hospitalization)
  Sender: FDA-Public Use
  Company Number: GR200511001872

PATIENT
  Age: 75 Year
  Sex: Female

DRUGS (2)
  1. FORTEO [Suspect]
     Indication: OSTEOPOROSIS
     Dosage: 20 UG/DAY, DAILY (1/D), SUBCUTANEOUS
     Route: 058
     Dates: start: 20050901, end: 20051001
  2. FORTEO [Concomitant]

REACTIONS (1)
  - CARDIAC DISORDER [None]
